FAERS Safety Report 5971677-4 (Version None)
Quarter: 2008Q4

REPORT INFORMATION
  Report Type: 
  Country: None (occurrence: None)
  Receive Date: 20081201
  Receipt Date: 20081117
  Transmission Date: 20090506
  Serious: Yes (Hospitalization)
  Sender: FDA-Public Use
  Company Number: JP-SANOFI-SYNTHELABO-F01200801278

PATIENT
  Sex: Male
  Weight: 53.5 kg

DRUGS (8)
  1. CLOPIDOGREL [Suspect]
     Indication: CEREBRAL INFARCTION
     Dosage: 50MG/75 MG : BLIND
     Route: 048
     Dates: start: 20070905, end: 20080706
  2. MOHRUS [Concomitant]
     Indication: BACK PAIN
     Dosage: UNK
     Route: 065
     Dates: start: 20080621
  3. NORVASC [Concomitant]
     Indication: HYPERTENSION
     Dosage: 5 MG
     Route: 048
     Dates: start: 20060208
  4. CHOTO-SAN [Concomitant]
     Indication: HYPERTENSION
     Dosage: 7.5 G
     Route: 048
     Dates: start: 20060607
  5. IBURONOL [Concomitant]
     Indication: CEREBRAL INFARCTION
     Dosage: 60 MG
     Route: 048
     Dates: start: 20030806
  6. PURSENNID [Concomitant]
     Indication: CONSTIPATION
     Dosage: 24 MG
     Route: 048
     Dates: start: 20070627
  7. PLAVIX [Concomitant]
     Indication: CEREBRAL INFARCTION
     Route: 048
     Dates: start: 20080707
  8. NU-LOTAN [Concomitant]
     Indication: HYPERTENSION
     Dosage: 50 MG
     Route: 048
     Dates: start: 20001220

REACTIONS (1)
  - HYPERTHYROIDISM [None]
